FAERS Safety Report 5217204-0 (Version None)
Quarter: 2007Q1

REPORT INFORMATION
  Report Type: 
  Country: None (occurrence: None)
  Receive Date: 20070119
  Receipt Date: 20070108
  Transmission Date: 20070707
  Serious: Yes (Other)
  Sender: FDA-Public Use
  Company Number: 231448

PATIENT
  Age: 71 Year
  Sex: Male

DRUGS (5)
  1. MABTHERA (RITUXIMAB) CONC FOR SOLUTION FOR INFUSION [Suspect]
     Indication: RHEUMATOID ARTHRITIS
     Dates: end: 20060712
  2. ANTI-INFLAMMATORY AGENT NOS (ANTI-INFLAMMATORY AGENT NOS) [Concomitant]
  3. CORTICOSTEROIDS (CORTICOSTEROID NOS) [Concomitant]
  4. ANTIDEPRESSANT NOS (ANTIDEPRESSANT NOS) [Concomitant]
  5. TRANQUILIZER NOS (TRANQUILIZER NOS) [Concomitant]

REACTIONS (8)
  - ASTHENIA [None]
  - CHILLS [None]
  - CONDITION AGGRAVATED [None]
  - DELUSION [None]
  - DEPRESSION [None]
  - HOT FLUSH [None]
  - INFUSION RELATED REACTION [None]
  - SEDATION [None]
